FAERS Safety Report 14192542 (Version 1)
Quarter: 2017Q4

REPORT INFORMATION
  Report Type: Spontaneous
  Country: US (occurrence: US)
  Receive Date: 20171115
  Receipt Date: 20171115
  Transmission Date: 20180321
  Serious: Yes (Congenital Anomaly)
  Sender: FDA-Public Use
  Company Number: US-WARNER CHILCOTT-2017-000011

PATIENT
  Age: 1 Day
  Sex: Male
  Weight: 3.08 kg

DRUGS (1)
  1. LO LOESTRIN FE [Suspect]
     Active Substance: ETHINYL ESTRADIOL\NORETHINDRONE ACETATE
     Dosage: UNK
     Route: 064
     Dates: end: 201602

REACTIONS (4)
  - Volvulus [Recovered/Resolved]
  - Vomiting [Recovered/Resolved]
  - Intestinal malrotation [Recovered/Resolved]
  - Foetal exposure during pregnancy [Unknown]

NARRATIVE: CASE EVENT DATE: 20161105
